FAERS Safety Report 24795388 (Version 1)
Quarter: 2024Q4

REPORT INFORMATION
  Report Type: Spontaneous
  Country: DE (occurrence: DE)
  Receive Date: 20241231
  Receipt Date: 20241231
  Transmission Date: 20250115
  Serious: Yes (Other)
  Sender: MYLAN
  Company Number: None

PATIENT
  Age: 11 Year
  Sex: Male
  Weight: 35 kg

DRUGS (1)
  1. VALPROIC ACID [Suspect]
     Active Substance: VALPROIC ACID
     Indication: Epilepsy
     Dosage: 2250 MILLIGRAM, QD (1050 MG - 0 - 1200 MG)
     Route: 048
     Dates: start: 2011, end: 20241125

REACTIONS (4)
  - Thrombocytopenia [Recovered/Resolved]
  - Gingival hypertrophy [Recovered/Resolved]
  - Gingival bleeding [Recovered/Resolved]
  - Prothrombin time prolonged [Recovered/Resolved]

NARRATIVE: CASE EVENT DATE: 20230101
